FAERS Safety Report 22133076 (Version 1)
Quarter: 2023Q1

REPORT INFORMATION
  Report Type: Spontaneous
  Country: US (occurrence: US)
  Receive Date: 20230324
  Receipt Date: 20230324
  Transmission Date: 20230417
  Serious: Yes (Hospitalization)
  Sender: FDA-Public Use
  Company Number: US-BRISTOL-MYERS SQUIBB COMPANY-2023-040046

PATIENT
  Age: 63 Year
  Sex: Female
  Weight: 103.42 kg

DRUGS (23)
  1. REVLIMID [Suspect]
     Active Substance: LENALIDOMIDE
     Indication: Plasma cell myeloma
     Dosage: ONCE DAILY 21 DAYS THEN 7 DAYS OFF
     Route: 048
     Dates: start: 202204
  2. REVLIMID [Suspect]
     Active Substance: LENALIDOMIDE
     Dosage: ONCE DAILY 21 DAYS THEN 7 DAYS OFF
     Route: 048
     Dates: start: 202204
  3. DEXAMETHASONE [Concomitant]
     Active Substance: DEXAMETHASONE
     Indication: Product used for unknown indication
     Dosage: ONE DAY A WEEK
     Route: 048
  4. ALCLOMETASONE [Concomitant]
     Active Substance: ALCLOMETASONE
     Indication: Product used for unknown indication
     Dosage: APPLY TOPICALLY TO THE AFFECTED AREA OF FACE TWICE DAILY AS NEEDED.
  5. AMOXICILLIN [Concomitant]
     Active Substance: AMOXICILLIN
     Indication: Product used for unknown indication
     Dosage: TAKE 1 TABLET BY MOUTH EVERY 12 HRS FOR 10 DAYS
     Route: 048
  6. AMOXICILLIN [Concomitant]
     Active Substance: AMOXICILLIN
     Indication: Product used for unknown indication
     Dosage: TAKE 1 TABLET BY MOUTH EVERY 12 HRS FOR 10 DAYS
     Route: 048
  7. ASPIRIN [Concomitant]
     Active Substance: ASPIRIN
     Indication: Product used for unknown indication
     Route: 048
  8. GABAPENTIN [Concomitant]
     Active Substance: GABAPENTIN
     Indication: Product used for unknown indication
     Route: 048
  9. GAVILYTE G [Concomitant]
     Active Substance: POLYETHYLENE GLYCOL 3350\POTASSIUM CHLORIDE\SODIUM BICARBONATE\SODIUM CHLORIDE\SODIUM SULFATE
     Indication: Product used for unknown indication
     Dosage: MIX AND DRINK AS DIRECTED
     Route: 048
  10. LACOSAMIDE [Concomitant]
     Active Substance: LACOSAMIDE
     Indication: Seizure
     Dosage: MIX AND DRINK AS DIRECTED
     Route: 048
  11. LACTULOSE [Concomitant]
     Active Substance: LACTULOSE
     Indication: Ammonia increased
     Dosage: 10GM/15ML ORAL/RECTAL SOL, TAKE 30ML (IF MORE THAN 3 STOOLS PER DAY DECREASE DOSE
     Route: 048
  12. LANTUS SOLOSTAR [Concomitant]
     Active Substance: INSULIN GLARGINE
     Indication: Ammonia increased
     Dosage: PEN INJ. 3ML , 36 UNITS UNDER THE SKIN DAILY AS DIRECTED
  13. MAGNESIUM OXIDE [Concomitant]
     Active Substance: MAGNESIUM OXIDE
     Indication: Product used for unknown indication
     Route: 048
  14. MOXIFLOXACIN [Concomitant]
     Active Substance: MOXIFLOXACIN
     Indication: Product used for unknown indication
     Dosage: 1 DROP IN LEFT EYE 3 TIMES DAILY FOR 7DAYS
     Route: 047
  15. PANTOPRAZOLE [Concomitant]
     Active Substance: PANTOPRAZOLE
     Indication: Product used for unknown indication
     Route: 048
  16. PREDNISOLONE ACETATE [Concomitant]
     Active Substance: PREDNISOLONE ACETATE
     Indication: Product used for unknown indication
     Dosage: INSTILL 1 DROP IN LEFT EYE FOUR TIMES DAILY FOR 7DAYS THEN BEGIN WEEKLY TAPER 3,2,1 THEN STOP
     Route: 047
  17. PREDNISONE [Concomitant]
     Active Substance: PREDNISONE
     Indication: Product used for unknown indication
     Dosage: DAYS 1-7 TAKE 6 TABLETS BY MOUTH WITH FOOD, DAY 8 5TABKETS, DAY 9 4TABLETS, DAY 10 3 TABLETS, DAY 11
     Route: 048
  18. SUTAB [Concomitant]
     Active Substance: MAGNESIUM SULFATE\POTASSIUM CHLORIDE\SODIUM SULFATE
     Indication: Product used for unknown indication
     Dosage: TAKE BEFORE AS DIRECTED BEFORE COLONOSCOPY.
  19. TOPIRAMATE [Concomitant]
     Active Substance: TOPIRAMATE
     Indication: Product used for unknown indication
     Dosage: 1 TABLETS BY MOUTH TWICE DAILY
     Route: 048
  20. TOPIRAMATE [Concomitant]
     Active Substance: TOPIRAMATE
     Dosage: 3 TABLETS BY MOUTH TWICE DAILY
     Route: 048
  21. PRENATAL 19 [Concomitant]
     Active Substance: .ALPHA.-TOCOPHEROL ACETATE, DL-\.BETA.-CAROTENE\ASCORBIC ACID\CALCIUM CARBONATE\CALCIUM PANTOTHENATE
     Indication: Product used for unknown indication
  22. ERGOCALCIFEROL [Concomitant]
     Active Substance: ERGOCALCIFEROL
     Indication: Product used for unknown indication
     Dosage: SOFT GELS
  23. ZOMETA [Concomitant]
     Active Substance: ZOLEDRONIC ACID
     Indication: Product used for unknown indication
     Dosage: 4MG/5ML INJ, 5ML

REACTIONS (1)
  - Blood pressure increased [Unknown]

NARRATIVE: CASE EVENT DATE: 20230315
